FAERS Safety Report 12739883 (Version 1)
Quarter: 2016Q3

REPORT INFORMATION
  Report Type: Report from Study
  Country: ES (occurrence: ES)
  Receive Date: 20160913
  Receipt Date: 20160913
  Transmission Date: 20161109
  Serious: Yes (Other)
  Sender: FDA-Public Use
  Company Number: ES-BAXTER-2016BAX046218

PATIENT
  Age: 61 Year

DRUGS (12)
  1. FLUDARABINE [Suspect]
     Active Substance: FLUDARABINE PHOSPHATE
     Dosage: REDUCED DUE TO NON-HEMATOLOGIC TOXICITY
     Route: 065
     Dates: start: 20110628, end: 20110630
  2. RITUXIMAB [Suspect]
     Active Substance: RITUXIMAB
     Dosage: DELAYED DOSE
     Route: 065
     Dates: start: 20110530, end: 20110601
  3. RITUXIMAB [Suspect]
     Active Substance: RITUXIMAB
     Dosage: DELAYED DOSE DUE TO HEMATOLOGIC TOXICITY
     Route: 065
     Dates: start: 20110912, end: 20110914
  4. GENOXAL [Suspect]
     Active Substance: CYCLOPHOSPHAMIDE
     Indication: CHRONIC LYMPHOCYTIC LEUKAEMIA
     Dosage: REDUCED DOSE DUE TO NON-HEMATOLOGIC TOXICITY
     Route: 065
     Dates: start: 20110221, end: 20110223
  5. GENOXAL [Suspect]
     Active Substance: CYCLOPHOSPHAMIDE
     Dosage: DELAYED AND REDUCED DOSE DUE TO HEMATOLOGIC TOXICITY
     Route: 065
     Dates: start: 20110912, end: 20110914
  6. FLUDARABINE [Suspect]
     Active Substance: FLUDARABINE PHOSPHATE
     Dosage: DELAYED AND REDUCED DUE TO HEMATOLOGIC TOXICITY
     Route: 065
     Dates: start: 20110912, end: 20110914
  7. GENOXAL [Suspect]
     Active Substance: CYCLOPHOSPHAMIDE
     Dosage: COMPLETE DOSE
     Route: 065
     Dates: start: 20110628, end: 20110630
  8. RITUXIMAB [Suspect]
     Active Substance: RITUXIMAB
     Dosage: COMPLETE DOSE
     Route: 065
     Dates: start: 20110628, end: 20110630
  9. FLUDARABINE [Suspect]
     Active Substance: FLUDARABINE PHOSPHATE
     Indication: CHRONIC LYMPHOCYTIC LEUKAEMIA
     Dosage: REDUCED DOSE DUE TO NON-HEMATOLOGIC TOXICITY
     Route: 065
     Dates: start: 20110221, end: 20110223
  10. FLUDARABINE [Suspect]
     Active Substance: FLUDARABINE PHOSPHATE
     Dosage: DELAYED AND REDUCED DOSE DUE TO NON-HEMATOLOGIC TOXICITY
     Route: 065
     Dates: start: 20110530, end: 20110601
  11. GENOXAL [Suspect]
     Active Substance: CYCLOPHOSPHAMIDE
     Dosage: DELAYED DOSE DUE TO HEMATOLOGIC TOXICITY
     Route: 065
     Dates: start: 20110530, end: 20110601
  12. RITUXIMAB [Suspect]
     Active Substance: RITUXIMAB
     Indication: CHRONIC LYMPHOCYTIC LEUKAEMIA
     Dosage: COMPLETE DOSE
     Route: 065
     Dates: start: 20110221, end: 20110223

REACTIONS (2)
  - Haematotoxicity [Unknown]
  - Platelet count decreased [Recovered/Resolved]

NARRATIVE: CASE EVENT DATE: 20110627
